FAERS Safety Report 7611625-4 (Version None)
Quarter: 2011Q3

REPORT INFORMATION
  Report Type: 
  Country: None (occurrence: None)
  Receive Date: 20110715
  Receipt Date: 20110707
  Transmission Date: 20111222
  Serious: Yes (Death)
  Sender: FDA-Public Use
  Company Number: US-ACTELION-A-NJ2011-51365

PATIENT

DRUGS (15)
  1. PRILOSEC [Concomitant]
  2. ZYLOPRIM [Concomitant]
  3. NITROSTAT [Concomitant]
  4. ARICEPT [Concomitant]
  5. ALBUTEROL SULFATE AUTOHALER [Concomitant]
  6. TRACLEER [Suspect]
     Indication: PULMONARY ARTERIAL HYPERTENSION
     Dosage: 125 MG, BID
     Route: 048
     Dates: start: 20080611, end: 20110701
  7. FERROUS SULFATE TAB [Concomitant]
  8. ADVAIR DISKUS 100/50 [Concomitant]
  9. NAMENDA [Concomitant]
  10. COUMADIN [Concomitant]
  11. ALDACTONE [Concomitant]
  12. MULTI-VITAMIN [Concomitant]
  13. NORVASC [Concomitant]
  14. XOPENEX [Concomitant]
  15. SPIRIVA [Concomitant]

REACTIONS (1)
  - DEATH [None]
